FAERS Safety Report 4680903-3 (Version None)
Quarter: 2005Q2

REPORT INFORMATION
  Report Type: 
  Country: None (occurrence: None)
  Receive Date: 20050531
  Receipt Date: 20050531
  Transmission Date: 20051028
  Serious: Yes (Hospitalization)
  Sender: FDA-Public Use
  Company Number: None

PATIENT
  Age: 67 Year
  Sex: Female

DRUGS (1)
  1. CYMBALTA [Suspect]
     Indication: DEPRESSION
     Dosage: ORAL ONE DAILY   11/1 OR TO PRESENT
     Route: 048

REACTIONS (2)
  - PO2 DECREASED [None]
  - RESPIRATORY DISORDER [None]
